FAERS Safety Report 19174707 (Version 2)
Quarter: 2021Q2

REPORT INFORMATION
  Report Type: Spontaneous
  Country: US (occurrence: US)
  Receive Date: 20210423
  Receipt Date: 20210623
  Transmission Date: 20210717
  Serious: Yes (Other)
  Sender: FDA-Public Use
  Company Number: US-IMPRIMIS NJOF-2109700

PATIENT

DRUGS (1)
  1. PREDNISOLONE ACETATE?MOXIFLOXACIN?NEPAFENAC STERILE OPHTHALMIC SUSPENS [Suspect]
     Active Substance: MOXIFLOXACIN\NEPAFENAC\PREDNISOLONE ACETATE
     Route: 047

REACTIONS (1)
  - Hypersensitivity [Unknown]
